FAERS Safety Report 5277531-8 (Version None)
Quarter: 2007Q1

REPORT INFORMATION
  Report Type: 
  Country: None (occurrence: None)
  Receive Date: 20070327
  Receipt Date: 20070316
  Transmission Date: 20070707
  Serious: Yes (Hospitalization)
  Sender: FDA-Public Use
  Company Number: JP-ROCHE-487934

PATIENT
  Age: 76 Year
  Sex: Male

DRUGS (4)
  1. TICLOPIDINE HCL [Suspect]
     Indication: CEREBRAL INFARCTION
     Route: 048
     Dates: end: 20070112
  2. LUPRAC [Concomitant]
  3. ASPIRIN [Concomitant]
  4. TANATRIL [Concomitant]

REACTIONS (1)
  - INTERSTITIAL LUNG DISEASE [None]
